FAERS Safety Report 8200351-9 (Version None)
Quarter: 2012Q1

REPORT INFORMATION
  Report Type: 
  Country: None (occurrence: None)
  Receive Date: 20120312
  Receipt Date: 20120229
  Transmission Date: 20120608
  Serious: Yes (Other)
  Sender: FDA-Public Use
  Company Number: CA-NOVOPROD-346212

PATIENT
  Sex: Female

DRUGS (1)
  1. VICTOZA [Suspect]
     Indication: PRODUCT USED FOR UNKNOWN INDICATION
     Dosage: 0.6 MG, QD
     Route: 058
     Dates: start: 20120224, end: 20120226

REACTIONS (5)
  - PAIN [None]
  - CHEST DISCOMFORT [None]
  - HYPOTENSION [None]
  - DYSPNOEA [None]
  - HEADACHE [None]
